FAERS Safety Report 16278268 (Version 4)
Quarter: 2021Q2

REPORT INFORMATION
  Report Type: Report from Study
  Country: BR (occurrence: BR)
  Receive Date: 20190506
  Receipt Date: 20210506
  Transmission Date: 20210716
  Serious: Yes (Other)
  Sender: FDA-Public Use
  Company Number: PHHY2018BR014813

PATIENT
  Age: 52 Year
  Sex: Female
  Weight: 52 kg

DRUGS (5)
  1. COSENTYX [Suspect]
     Active Substance: SECUKINUMAB
     Dosage: 300 MG, QMO
     Route: 058
  2. COSENTYX [Suspect]
     Active Substance: SECUKINUMAB
     Indication: PSORIATIC ARTHROPATHY
     Dosage: UNK
     Route: 065
     Dates: start: 201804
  3. COSENTYX [Suspect]
     Active Substance: SECUKINUMAB
     Dosage: 300 MG, EVERY 8 DAYS
     Route: 058
  4. COSENTYX [Suspect]
     Active Substance: SECUKINUMAB
     Indication: PSORIASIS
     Dosage: UNK
     Route: 065
     Dates: start: 20180414
  5. COSENTYX [Suspect]
     Active Substance: SECUKINUMAB
     Dosage: 300 MG, QW (2 AMPOULES OF 150 MG)
     Route: 065
     Dates: start: 20180417

REACTIONS (24)
  - Viral infection [Recovered/Resolved]
  - Headache [Unknown]
  - Decreased immune responsiveness [Unknown]
  - Pruritus [Unknown]
  - Erythema [Recovering/Resolving]
  - Nail injury [Unknown]
  - Nail disorder [Unknown]
  - Eye disorder [Unknown]
  - Agitation [Recovering/Resolving]
  - Feeling hot [Unknown]
  - Inflammation [Unknown]
  - Dengue fever [Unknown]
  - Pyrexia [Unknown]
  - Pain [Unknown]
  - Onychalgia [Unknown]
  - Hypoacusis [Not Recovered/Not Resolved]
  - Limb injury [Not Recovered/Not Resolved]
  - Psoriasis [Recovering/Resolving]
  - Product storage error [Unknown]
  - Tension [Not Recovered/Not Resolved]
  - Influenza [Recovering/Resolving]
  - Memory impairment [Not Recovered/Not Resolved]
  - Illness [Recovered/Resolved]
  - Inappropriate schedule of product administration [Unknown]

NARRATIVE: CASE EVENT DATE: 20180809
